FAERS Safety Report 12959252 (Version 1)
Quarter: 2016Q4

REPORT INFORMATION
  Report Type: Report from Study
  Country: JP (occurrence: JP)
  Receive Date: 20161121
  Receipt Date: 20161121
  Transmission Date: 20170207
  Serious: Yes (Life-Threatening, Other)
  Sender: FDA-Public Use
  Company Number: JP-ASTELLAS-2005JP002166

PATIENT
  Age: 9 Year
  Sex: Male
  Weight: 54 kg

DRUGS (17)
  1. ENTERONON R [Concomitant]
     Indication: DYSBACTERIOSIS
     Dosage: 2 DF/DAY, THRICE DAILY
     Route: 048
     Dates: start: 20040909
  2. LASIX [Concomitant]
     Active Substance: FUROSEMIDE
     Indication: POLYURIA
     Route: 042
     Dates: start: 20040902, end: 20040910
  3. PRODIF [Concomitant]
     Active Substance: FOSFLUCONAZOLE
     Indication: INFECTION PROPHYLAXIS
     Route: 042
     Dates: start: 20040902
  4. VENOGLOBULIN IH [Concomitant]
     Active Substance: HUMAN IMMUNOGLOBULIN G
     Indication: INFECTION PROPHYLAXIS
     Route: 042
     Dates: start: 20040902
  5. LAC B [Concomitant]
     Active Substance: BIFIDOBACTERIUM SPP.
     Indication: DYSBACTERIOSIS
     Dosage: UNK UNK, THRICE DAILY
     Route: 048
     Dates: start: 20040909
  6. ZOVIRAX [Concomitant]
     Active Substance: ACYCLOVIR
     Indication: INFECTION PROPHYLAXIS
     Route: 042
     Dates: start: 20040902
  7. URSO [Concomitant]
     Active Substance: URSODIOL
     Indication: CHOLESTASIS
     Route: 048
     Dates: start: 20040909
  8. MEROPEN [Concomitant]
     Active Substance: MEROPENEM
     Indication: INFECTION PROPHYLAXIS
     Dosage: 1.0 G, ONCE DAILY
     Route: 041
     Dates: start: 20040902
  9. OMEPRAL [Concomitant]
     Active Substance: OMEPRAZOLE
     Indication: PROPHYLAXIS AGAINST GASTROINTESTINAL ULCER
     Route: 042
     Dates: start: 20040902
  10. NEUART [Concomitant]
     Active Substance: ANTITHROMBIN III HUMAN
     Indication: ANTITHROMBIN III DECREASED
     Route: 042
     Dates: start: 20040902
  11. MIYA-BM [Concomitant]
     Active Substance: CLOSTRIDIUM BUTYRICUM SPORES STRAIN M-55
     Indication: DYSBACTERIOSIS
     Dosage: 2 DF/DAY, THRICE DAILY
     Route: 048
     Dates: start: 20040909
  12. FOY [Concomitant]
     Active Substance: GABEXATE MESYLATE
     Indication: DISSEMINATED INTRAVASCULAR COAGULATION
     Route: 042
     Dates: start: 20040902
  13. TACROLIMUS. [Suspect]
     Active Substance: TACROLIMUS
     Indication: IMMUNOSUPPRESSANT DRUG THERAPY
     Dosage: 0.075MG/KG/DAY, TWICE DAILY
     Route: 048
     Dates: start: 20040901, end: 20040914
  14. SOLU-MEDROL [Concomitant]
     Active Substance: METHYLPREDNISOLONE SODIUM SUCCINATE
     Indication: IMMUNOSUPPRESSANT DRUG THERAPY
     Dosage: 375-50, ONCE DAILY
     Route: 042
     Dates: start: 20040902
  15. DORMICUM [Concomitant]
     Active Substance: MIDAZOLAM\MIDAZOLAM HYDROCHLORIDE
     Indication: SEDATION
     Dosage: UNK UNK, APPROPRIATELY
     Route: 042
     Dates: start: 20040902, end: 20040912
  16. ELASPOL [Concomitant]
     Active Substance: SIVELESTAT SODIUM
     Indication: RESPIRATORY DISORDER
     Route: 042
     Dates: start: 20040902, end: 20040914
  17. PRECEDEX [Concomitant]
     Active Substance: DEXMEDETOMIDINE HYDROCHLORIDE
     Indication: SEDATION
     Dosage: UUNK UNK, APPROPRIATELY
     Route: 042
     Dates: start: 20040902, end: 20040913

REACTIONS (2)
  - Seizure [Recovered/Resolved]
  - Leukoencephalopathy [Unknown]

NARRATIVE: CASE EVENT DATE: 20040912
